FAERS Safety Report 7138563-8 (Version None)
Quarter: 2010Q4

REPORT INFORMATION
  Report Type: 
  Country: None (occurrence: None)
  Receive Date: 20101206
  Receipt Date: 20101125
  Transmission Date: 20110411
  Serious: Yes (Death, Hospitalization)
  Sender: FDA-Public Use
  Company Number: CO-GENENTECH-310198

PATIENT
  Sex: Female

DRUGS (1)
  1. MABTHERA [Suspect]
     Indication: SJOGREN'S SYNDROME
     Dosage: 1000 MG, Q21D
     Route: 042
     Dates: start: 20091125, end: 20091209

REACTIONS (1)
  - DISEASE PROGRESSION [None]
